FAERS Safety Report 5941707-4 (Version None)
Quarter: 2008Q4

REPORT INFORMATION
  Report Type: 
  Country: None (occurrence: None)
  Receive Date: 20081031
  Receipt Date: 20081017
  Transmission Date: 20090506
  Serious: Yes (Hospitalization)
  Sender: FDA-Public Use
  Company Number: 230426K08USA

PATIENT
  Age: 31 Year
  Sex: Female

DRUGS (3)
  1. REBIF [Suspect]
     Indication: MULTIPLE SCLEROSIS
     Dosage: 44 MCG, 3 IN 1 WEEKS, SUBCUTANEOUS
     Route: 058
     Dates: start: 20080529
  2. GABAPENTIN [Concomitant]
  3. LYRICA [Concomitant]

REACTIONS (3)
  - ABDOMINAL PAIN UPPER [None]
  - APPENDICITIS PERFORATED [None]
  - PYREXIA [None]
